FAERS Safety Report 8597530-8 (Version None)
Quarter: 2012Q3

REPORT INFORMATION
  Report Type: 
  Country: None (occurrence: None)
  Receive Date: 20120816
  Receipt Date: 20120807
  Transmission Date: 20120928
  Serious: Yes (Hospitalization, Other)
  Sender: FDA-Public Use
  Company Number: US-BAYER-2012-034434

PATIENT
  Age: 34 Year
  Sex: Female
  Weight: 67.12 kg

DRUGS (4)
  1. PERCOCET [Concomitant]
     Indication: PAIN
     Dosage: UNK UNK, PRN
  2. DILAUDID [Concomitant]
     Dosage: UNK
  3. YAZ [Suspect]
     Indication: CONTRACEPTION
     Dosage: UNK
     Dates: start: 20090801, end: 20100501
  4. ZOFRAN [Concomitant]
     Indication: NAUSEA
     Dosage: UNK UNK, PRN

REACTIONS (4)
  - PAIN [None]
  - INJURY [None]
  - GALLBLADDER INJURY [None]
  - CHOLECYSTITIS CHRONIC [None]
